FAERS Safety Report 9676513 (Version 2)
Quarter: 2013Q4

REPORT INFORMATION
  Report Type: Spontaneous
  Country: NO (occurrence: NO)
  Receive Date: 20131107
  Receipt Date: 20131120
  Transmission Date: 20140711
  Serious: Yes (Hospitalization)
  Sender: FDA-Public Use
  Company Number: NO-ROCHE-1295470

PATIENT
  Age: 54 Year
  Sex: Male

DRUGS (3)
  1. PEGASYS [Suspect]
     Indication: HEPATITIS C
     Route: 065
     Dates: start: 201212, end: 201305
  2. COPEGUS [Suspect]
     Indication: HEPATITIS C
     Route: 065
     Dates: start: 201212, end: 201305
  3. DEXAMPHETAMINE [Concomitant]

REACTIONS (8)
  - Malnutrition [Recovered/Resolved]
  - Hallucination [Recovered/Resolved]
  - Insomnia [Recovered/Resolved]
  - Depression [Unknown]
  - Weight decreased [Unknown]
  - Anxiety [Unknown]
  - Loose tooth [Unknown]
  - Mental disorder [Unknown]
